FAERS Safety Report 8806977 (Version 1)
Quarter: 2012Q4

REPORT INFORMATION
  Report Type: 
  Country: JP (occurrence: JP)
  Receive Date: 20120925
  Receipt Date: 20120925
  Transmission Date: 20130627
  Serious: Yes (Other)
  Sender: FDA-Public Use
  Company Number: JP-VERTEX PHARMACEUTICAL INC.-2012-020984

PATIENT
  Age: 60 Year
  Sex: Female

DRUGS (7)
  1. TELAVIC [Suspect]
     Indication: HEPATITIS C
     Dosage: 2250 mg, UNK
     Route: 048
  2. TELAVIC [Suspect]
     Dosage: 1500 mg, UNK
     Route: 048
  3. TELAVIC [Suspect]
     Dosage: 750 UNK, UNK
     Route: 048
  4. PEGINTERFERON ALFA-2B [Suspect]
     Indication: HEPATITIS C
     Dosage: 1.6 UNK, UNK
  5. RIBAVIRIN [Suspect]
     Indication: HEPATITIS C
     Dosage: 600 mg, UNK
     Route: 048
  6. RIBAVIRIN [Suspect]
     Dosage: 400 UNK, UNK
     Route: 048
  7. RINGER^S ACETATE [Concomitant]

REACTIONS (8)
  - Rhabdomyolysis [Not Recovered/Not Resolved]
  - Renal disorder [Recovered/Resolved]
  - Musculoskeletal stiffness [Not Recovered/Not Resolved]
  - Urine output decreased [Not Recovered/Not Resolved]
  - Blood urea increased [Not Recovered/Not Resolved]
  - Blood lactate dehydrogenase increased [Not Recovered/Not Resolved]
  - Blood creatinine increased [Not Recovered/Not Resolved]
  - Blood uric acid increased [Not Recovered/Not Resolved]
